FAERS Safety Report 4718196-0 (Version None)
Quarter: 2005Q3

REPORT INFORMATION
  Report Type: 
  Country: None (occurrence: None)
  Receive Date: 20050718
  Receipt Date: 20050718
  Transmission Date: 20060218
  Serious: No
  Sender: FDA-Public Use
  Company Number: None

PATIENT
  Sex: Male
  Weight: 202.4 kg

DRUGS (12)
  1. KETOCONAZOLE [Suspect]
     Indication: PROSTATE CANCER
     Dosage: 400 MG PO TID
     Route: 048
     Dates: start: 20050503
  2. GM-CSF [Suspect]
     Indication: PROSTATE CANCER
     Dosage: 500 MCG INJ
     Dates: start: 20050519, end: 20050601
  3. GM-CSF [Suspect]
     Indication: PROSTATE CANCER
     Dosage: 500 MCG INJ
     Dates: start: 20050614, end: 20050627
  4. GM-CSF [Suspect]
     Indication: PROSTATE CANCER
     Dosage: 500 MCG INJ
     Dates: start: 20050712
  5. LUPRON [Concomitant]
  6. COUMADIN [Concomitant]
  7. DILTIAZEM [Concomitant]
  8. ASPIRIN [Concomitant]
  9. NIACIN [Concomitant]
  10. FOSAMAX [Concomitant]
  11. VITAMINS [Concomitant]
  12. SUPPLEMENTS [Concomitant]

REACTIONS (5)
  - AGGRESSION [None]
  - CONDITION AGGRAVATED [None]
  - FAMILY STRESS [None]
  - FATIGUE [None]
  - MOOD ALTERED [None]
